FAERS Safety Report 6604438-3 (Version None)
Quarter: 2010Q1

REPORT INFORMATION
  Report Type: 
  Country: None (occurrence: None)
  Receive Date: 20100226
  Receipt Date: 20091008
  Transmission Date: 20100710
  Serious: No
  Sender: FDA-Public Use
  Company Number: A0810949A

PATIENT
  Age: 73 Year
  Sex: Male

DRUGS (7)
  1. LAMICTAL CD [Suspect]
     Dosage: 100MG TWICE PER DAY
     Route: 048
     Dates: start: 19960101
  2. AMBIEN CR [Concomitant]
  3. LUNESTA [Concomitant]
  4. ARICEPT [Concomitant]
  5. PREVACID [Concomitant]
  6. SIMVASTATIN [Concomitant]
  7. ZYRTEC [Concomitant]

REACTIONS (9)
  - AGITATION [None]
  - DIARRHOEA [None]
  - DRUG INEFFECTIVE [None]
  - HEADACHE [None]
  - ILL-DEFINED DISORDER [None]
  - INSOMNIA [None]
  - IRRITABILITY [None]
  - NIGHTMARE [None]
  - SOMNOLENCE [None]
